FAERS Safety Report 18476553 (Version 1)
Quarter: 2020Q4

REPORT INFORMATION
  Report Type: Spontaneous
  Country: CN (occurrence: CN)
  Receive Date: 20201106
  Receipt Date: 20201106
  Transmission Date: 20210114
  Serious: Yes (Other)
  Sender: FDA-Public Use
  Company Number: CN-BAXTER-2020BAX022450

PATIENT
  Age: 37 Year
  Sex: Female
  Weight: 50 kg

DRUGS (12)
  1. ENDOXAN [Suspect]
     Active Substance: CYCLOPHOSPHAMIDE
     Dosage: FOURTH CHEMOTHERAPY: CYCLOPHOSPHAMIDE 930 MG + NS 50ML
     Route: 042
     Dates: start: 20200728, end: 20200728
  2. ENDOXAN [Suspect]
     Active Substance: CYCLOPHOSPHAMIDE
     Dosage: DOSE RE-INTRODUCED, CYCLOPHOSPHAMIDE + NS
     Route: 042
  3. 0.9% SODIUM CHLORIDE INJECTION [Suspect]
     Active Substance: SODIUM CHLORIDE
     Dosage: DOCETAXEL 117 MG +250 NORMAL SALINE (4TH CHEMOTHERAPY)
     Route: 041
     Dates: start: 20200728, end: 20200728
  4. 0.9% SODIUM CHLORIDE INJECTION [Suspect]
     Active Substance: SODIUM CHLORIDE
     Dosage: DOCETAXEL + NS , DOSE RE-INTRODUCED
     Route: 041
  5. TAXOTERE [Suspect]
     Active Substance: DOCETAXEL
     Dosage: DOCETAXEL  +  NORMAL SALINE , DOSE REINTRODUCED
     Route: 041
  6. ENDOXAN [Suspect]
     Active Substance: CYCLOPHOSPHAMIDE
     Indication: BREAST CANCER FEMALE
     Dosage: 1-3 CHEMOTHERAPIES, CYCLOPHOSPHAMIDE + NS
     Route: 042
  7. 0.9% SODIUM CHLORIDE INJECTION [Suspect]
     Active Substance: SODIUM CHLORIDE
     Dosage: CYCLOPHOSPHAMIDE 930 MG + NORMAL SALINE (4TH CHEMOTHERAPY)
     Route: 042
     Dates: start: 20200728, end: 20200728
  8. 0.9% SODIUM CHLORIDE INJECTION [Suspect]
     Active Substance: SODIUM CHLORIDE
     Dosage: DOCETAXEL + NORMAL SALINE (1-3 CHEMOTHERAPIES)
     Route: 041
  9. TAXOTERE [Suspect]
     Active Substance: DOCETAXEL
     Indication: BREAST CANCER FEMALE
     Dosage: (1-3 CHEMOTHERAPIES) DOCETAXEL +  NORMAL SALINE
     Route: 041
  10. 0.9% SODIUM CHLORIDE INJECTION [Suspect]
     Active Substance: SODIUM CHLORIDE
     Dosage: CYCLOPHOSPHAMIDE + NORMAL SALINE (DOSE RE-INTRODUCED)
     Route: 042
  11. 0.9% SODIUM CHLORIDE INJECTION [Suspect]
     Active Substance: SODIUM CHLORIDE
     Indication: MEDICATION DILUTION
     Dosage: CYCLOPHOSPHAMIDE + NS (1-3 CHEMOTHERAPIES)
     Route: 042
  12. TAXOTERE [Suspect]
     Active Substance: DOCETAXEL
     Dosage: (4TH CHEMOTHERPAY CYCLE) DOCETAXEL 117 MG + 250 ML NS
     Route: 041
     Dates: start: 20200728, end: 20200728

REACTIONS (1)
  - Agranulocytosis [Recovering/Resolving]

NARRATIVE: CASE EVENT DATE: 20200803
